FAERS Safety Report 25904677 (Version 1)
Quarter: 2025Q4

REPORT INFORMATION
  Report Type: Report from Study
  Country: US (occurrence: US)
  Receive Date: 20251010
  Receipt Date: 20251010
  Transmission Date: 20260117
  Serious: Yes (Hospitalization)
  Sender: ABBVIE
  Company Number: US-ABBVIE-6493466

PATIENT
  Age: 49 Year
  Sex: Male

DRUGS (2)
  1. SKYRIZI [Suspect]
     Active Substance: RISANKIZUMAB-RZAA
     Indication: Colitis ulcerative
     Dosage: DRUG STOP DATE: 2025
     Route: 058
     Dates: start: 20250215
  2. SKYRIZI [Suspect]
     Active Substance: RISANKIZUMAB-RZAA
     Dosage: DRUG START DATE: 2025?STARTED BACK IN SKYRIZI
     Route: 058

REACTIONS (1)
  - Bacterial abdominal infection [Unknown]

NARRATIVE: CASE EVENT DATE: 20250101
